FAERS Safety Report 22278552 (Version 3)
Quarter: 2024Q1

REPORT INFORMATION
  Report Type: Spontaneous
  Country: US (occurrence: US)
  Receive Date: 20230503
  Receipt Date: 20240122
  Transmission Date: 20240410
  Serious: No
  Sender: FDA-Public Use
  Company Number: US-SANOFI-01596132

PATIENT
  Age: 48 Year
  Sex: Female

DRUGS (1)
  1. LANTUS SOLOSTAR [Suspect]
     Active Substance: INSULIN GLARGINE
     Indication: Type 1 diabetes mellitus
     Dosage: 6 UNITS AM + 5 UNITS PM BID

REACTIONS (2)
  - Injection site haemorrhage [Unknown]
  - Inappropriate schedule of product administration [Unknown]
